FAERS Safety Report 5781064-X (Version None)
Quarter: 2008Q2

REPORT INFORMATION
  Report Type: 
  Country: None (occurrence: None)
  Receive Date: 20080618
  Receipt Date: 20080606
  Transmission Date: 20081010
  Serious: Yes (Hospitalization)
  Sender: FDA-Public Use
  Company Number: 235433J08USA

PATIENT
  Age: 56 Year
  Sex: Male

DRUGS (7)
  1. REBIF [Suspect]
     Indication: MULTIPLE SCLEROSIS
     Dosage: 44 MCG, 3 IN 1 WEEKS, SUBCUTANEOUS
     Route: 058
     Dates: start: 20021217
  2. NEURONTIN [Concomitant]
  3. BACLOFEN [Concomitant]
  4. FLUOXETINE [Concomitant]
  5. PRILOSEC [Concomitant]
  6. CLARITIN [Concomitant]
  7. ZOCOR [Concomitant]

REACTIONS (4)
  - ABDOMINAL PAIN [None]
  - CHOLELITHIASIS [None]
  - HERNIA [None]
  - HYPERTENSION [None]
